FAERS Safety Report 10213977 (Version 1)
Quarter: 2014Q2

REPORT INFORMATION
  Report Type: Spontaneous
  Country: GB (occurrence: None)
  Receive Date: 20140529
  Receipt Date: 20140529
  Transmission Date: 20141212
  Serious: Yes (Life-Threatening)
  Sender: FDA-Public Use
  Company Number: GB-015786

PATIENT
  Age: 5 Year
  Sex: Female
  Weight: 18 kg

DRUGS (2)
  1. PICOLAX (MAGNESIUM CITRATE\SODIUM PICOSULFATE) [Suspect]
     Indication: BOWEL PREPARATION
     Dosage: 1/2 A SACHET FOR 2 DOSES ORAL
     Route: 048
     Dates: start: 20140429, end: 20140430
  2. CICLOSPORIN [Concomitant]

REACTIONS (1)
  - Blood magnesium increased [None]
